FAERS Safety Report 4980771-6 (Version None)
Quarter: 2006Q2

REPORT INFORMATION
  Report Type: 
  Country: None (occurrence: None)
  Receive Date: 20060424
  Receipt Date: 20051104
  Transmission Date: 20061013
  Serious: Yes (Hospitalization, Other)
  Sender: FDA-Public Use
  Company Number: US-MERCK-0511USA01676

PATIENT
  Age: 48 Year
  Sex: Male
  Weight: 117 kg

DRUGS (16)
  1. VIOXX [Suspect]
     Indication: ARTHRITIS
     Route: 048
     Dates: start: 20021001, end: 20031101
  2. ROXICET [Concomitant]
     Route: 065
  3. LISINOPRIL [Concomitant]
     Route: 065
  4. LANTUS [Concomitant]
     Route: 065
  5. INDOMETHACIN [Concomitant]
     Route: 065
  6. METOPROLOL [Concomitant]
     Route: 065
  7. MOEXIPRIL HYDROCHLORIDE [Concomitant]
     Route: 065
  8. NEUROTONIN CAPSULES [Concomitant]
     Route: 065
  9. HYDROCODONE HYDROCHLORIDE [Concomitant]
     Route: 065
  10. GLUCOPHAGE [Concomitant]
     Route: 065
  11. AVANDIA [Concomitant]
     Route: 065
  12. ZOCOR [Concomitant]
     Route: 048
  13. LOVASTATIN [Concomitant]
     Route: 065
  14. BACTROBAN [Concomitant]
     Route: 065
  15. XANAX [Concomitant]
     Route: 065
  16. BUTALBITAL [Concomitant]
     Route: 065

REACTIONS (16)
  - BLOOD TRIGLYCERIDES INCREASED [None]
  - CEREBROVASCULAR ACCIDENT [None]
  - CHEST PAIN [None]
  - CHRONIC OBSTRUCTIVE PULMONARY DISEASE [None]
  - CORONARY ARTERY DISEASE [None]
  - DIZZINESS [None]
  - DRUG HYPERSENSITIVITY [None]
  - DYSPEPSIA [None]
  - GASTRIC DISORDER [None]
  - GASTROOESOPHAGEAL REFLUX DISEASE [None]
  - HAEMATOCHEZIA [None]
  - HEADACHE [None]
  - HYPERTENSION [None]
  - OESOPHAGEAL DISORDER [None]
  - PERIPHERAL VASCULAR DISORDER [None]
  - PULMONARY EMBOLISM [None]
